FAERS Safety Report 19191279 (Version 6)
Quarter: 2022Q1

REPORT INFORMATION
  Report Type: Report from Study
  Country: CO (occurrence: CO)
  Receive Date: 20210428
  Receipt Date: 20220302
  Transmission Date: 20220424
  Serious: Yes (Life-Threatening)
  Sender: FDA-Public Use
  Company Number: CO-002147023-NVSC2021CO085671

PATIENT

DRUGS (12)
  1. RUXOLITINIB [Suspect]
     Active Substance: RUXOLITINIB
     Indication: Myelofibrosis
     Dosage: 20 MG, QD
     Route: 065
  2. RUXOLITINIB [Suspect]
     Active Substance: RUXOLITINIB
     Dosage: 20 MG, Q24H
     Route: 048
     Dates: start: 20210324, end: 20210329
  3. RUXOLITINIB [Suspect]
     Active Substance: RUXOLITINIB
     Dosage: 40 MG, QD
     Route: 048
     Dates: end: 20210330
  4. RUXOLITINIB [Suspect]
     Active Substance: RUXOLITINIB
     Dosage: 10 MG, Q12H
     Route: 048
     Dates: start: 20210330, end: 20210428
  5. RUXOLITINIB [Suspect]
     Active Substance: RUXOLITINIB
     Dosage: UNK, Q12H (1 OF 10 MG)
     Route: 048
  6. RUXOLITINIB [Suspect]
     Active Substance: RUXOLITINIB
     Dosage: 20 MG, Q24H
     Route: 048
     Dates: start: 20210501, end: 20210506
  7. RUXOLITINIB [Suspect]
     Active Substance: RUXOLITINIB
     Dosage: 10 MG, Q12H
     Route: 048
     Dates: start: 20210507
  8. RUXOLITINIB [Suspect]
     Active Substance: RUXOLITINIB
     Dosage: 10 MG, Q12H
     Route: 048
  9. RUXOLITINIB [Suspect]
     Active Substance: RUXOLITINIB
     Dosage: 5 MG, Q12H
     Route: 048
  10. RUXOLITINIB [Suspect]
     Active Substance: RUXOLITINIB
     Dosage: 2 TABLETS OF 5 MG IN THE MORNING AND 1 TABLET OF 5 MG AT NIGHT
     Route: 048
  11. LOSARTAN [Suspect]
     Active Substance: LOSARTAN
     Indication: Hypertension
     Dosage: 50 MG, Q24H (1 YEAR AND A HALF AGO APPROXIMATELY)
     Route: 048
  12. LEVOTHYROXINE [Concomitant]
     Active Substance: LEVOTHYROXINE
     Indication: Hyperthyroidism
     Dosage: 50 MG, QD (ONE HOUR BEFORE BREAKFAST), (8 YEARS AGO APPROXIMATELY)
     Route: 048

REACTIONS (14)
  - Hypersensitivity [Unknown]
  - Influenza [Unknown]
  - Product supply issue [Unknown]
  - Haematocrit decreased [Unknown]
  - Haematocrit increased [Recovered/Resolved]
  - Haemoglobin decreased [Unknown]
  - Haemoglobin abnormal [Recovered/Resolved]
  - Platelet count increased [Unknown]
  - Pruritus [Unknown]
  - Migraine [Unknown]
  - Ear pain [Recovered/Resolved]
  - Platelet count decreased [Unknown]
  - Headache [Unknown]
  - Inappropriate schedule of product administration [Unknown]
